FAERS Safety Report 14357603 (Version 3)
Quarter: 2018Q1

REPORT INFORMATION
  Report Type: Spontaneous
  Country: DE (occurrence: DE)
  Receive Date: 20180105
  Receipt Date: 20180212
  Transmission Date: 20180509
  Serious: Yes (Hospitalization)
  Sender: FDA-Public Use
  Company Number: DE-009507513-1801DEU000569

PATIENT
  Age: 70 Year
  Sex: Female
  Weight: 65 kg

DRUGS (12)
  1. KEYTRUDA [Suspect]
     Active Substance: PEMBROLIZUMAB
     Indication: NON-SMALL CELL LUNG CANCER
     Dosage: 130 MG, UNK
     Route: 042
     Dates: start: 20170727, end: 20170907
  2. CALCIVIT D [Concomitant]
     Dosage: DAILY DOSE: 1 DF DOSAGE FORM EVERY DAYS
  3. VALSARTAN PLUS [Concomitant]
     Dosage: DAILY DOSE: 1 DF DOSAGE FORM EVERY DAYS
  4. PREDNISOLONE. [Concomitant]
     Active Substance: PREDNISOLONE
     Dosage: DAILY DOSE: 5 MG MILLGRAM(S) EVERY DAYS
  5. CETIRIZIN [Concomitant]
     Active Substance: CETIRIZINE HYDROCHLORIDE
  6. ALLOPURINOL. [Concomitant]
     Active Substance: ALLOPURINOL
     Dosage: DAILY DOSE: 300 MG MILLGRAM(S) EVERY DAYS
  7. BEROTEC [Concomitant]
     Active Substance: FENOTEROL HYDROBROMIDE
     Dosage: DAILY DOSE: 2 DF DOSAGE FORM EVERY DAYS
  8. VITAMIN B12 [Concomitant]
     Active Substance: CYANOCOBALAMIN
     Dosage: 1000 MICROGRAM, UNK
     Dates: end: 20170614
  9. NEBIVOLOL. [Concomitant]
     Active Substance: NEBIVOLOL
     Dosage: DAILY DOSE: 5 MG MILLGRAM(S) EVERY DAYS
  10. ATROVENT [Concomitant]
     Active Substance: IPRATROPIUM BROMIDE
     Dosage: DAILY DOSE: 4 DF DOSAGE FORM EVERY DAYS
  11. FOLSAN [Concomitant]
     Active Substance: FOLIC ACID
     Dosage: DAILY DOSE: 5 MG MILLGRAM(S) EVERY DAYS
  12. TORSEMIDE. [Concomitant]
     Active Substance: TORSEMIDE
     Dosage: DAILY DOSE: 5 MG MILLGRAM(S) EVERY DAYS

REACTIONS (2)
  - End stage renal disease [Not Recovered/Not Resolved]
  - Tubulointerstitial nephritis [Not Recovered/Not Resolved]

NARRATIVE: CASE EVENT DATE: 20170908
